FAERS Safety Report 10800794 (Version 3)
Quarter: 2016Q1

REPORT INFORMATION
  Report Type: Spontaneous
  Country: US (occurrence: US)
  Receive Date: 20150216
  Receipt Date: 20160217
  Transmission Date: 20160525
  Serious: No
  Sender: FDA-Public Use
  Company Number: US-ALLERGAN-1425846US

PATIENT
  Age: 85 Year
  Sex: Female

DRUGS (9)
  1. ATORVASTATIN [Concomitant]
     Active Substance: ATORVASTATIN
     Dosage: 40 MG, DAY
  2. LASIKAL [Concomitant]
     Dosage: 40 MG, DAY
  3. REFRESH [Concomitant]
     Active Substance: UNSPECIFIED INGREDIENT
     Route: 047
  4. ATENOLOL. [Concomitant]
     Active Substance: ATENOLOL
     Dosage: 25 MG, DAY
  5. RESTASIS [Suspect]
     Active Substance: CYCLOSPORINE
     Indication: DRY EYE
     Dosage: 2 GTT, BID
     Route: 047
     Dates: start: 2013
  6. LOTEMAX [Concomitant]
     Active Substance: LOTEPREDNOL ETABONATE
  7. LISINOPRIL. [Concomitant]
     Active Substance: LISINOPRIL
     Dosage: 40 MG, DAY
  8. NORVASC [Concomitant]
     Active Substance: AMLODIPINE BESYLATE
     Dosage: 5 MG, DAY
  9. BABY ASPIRIN [Concomitant]
     Active Substance: ASPIRIN
     Dosage: 8 MG, DAY

REACTIONS (6)
  - Eyelid operation [Unknown]
  - Drug ineffective [Unknown]
  - Entropion [Recovering/Resolving]
  - Eye pain [Recovered/Resolved]
  - Foreign body in eye [Unknown]
  - Eye irritation [Recovered/Resolved]

NARRATIVE: CASE EVENT DATE: 201408
